FAERS Safety Report 26168948 (Version 1)
Quarter: 2025Q4

REPORT INFORMATION
  Report Type: Spontaneous
  Country: CH (occurrence: CH)
  Receive Date: 20251217
  Receipt Date: 20251217
  Transmission Date: 20260118
  Serious: Yes (Other)
  Sender: STRIDES
  Company Number: CH-STRIDES ARCOLAB LIMITED-2025SP015666

PATIENT
  Sex: Male
  Weight: 1.3 kg

DRUGS (7)
  1. PREDNISOLONE [Suspect]
     Active Substance: PREDNISOLONE
     Indication: Product used for unknown indication
     Dosage: 10 MILLIGRAM, QD
     Route: 064
  2. TACROLIMUS [Suspect]
     Active Substance: TACROLIMUS
     Indication: Product used for unknown indication
     Dosage: PO BID FOR TROUGH LEVELS 6-8 NG/ML TROUGH LEVELS 6-8 NG/ML; INTRODUCED 12 WEEKS PRIOR TO A NEW CONCE
     Route: 064
  3. AZATHIOPRINE [Suspect]
     Active Substance: AZATHIOPRINE
     Indication: Product used for unknown indication
     Dosage: 1 MILLIGRAM/KILOGRAM, QD
     Route: 064
  4. LEVOTHYROXINE [Suspect]
     Active Substance: LEVOTHYROXINE
     Indication: Product used for unknown indication
     Dosage: 0.125 MG/D
     Route: 064
  5. METHYLPREDNISOLONE [Suspect]
     Active Substance: METHYLPREDNISOLONE
     Indication: Product used for unknown indication
     Dosage: INTRAVENOUS BOLUS AT EACH INFUSION; INTRODUCED 12 WEEKS PRIOR TO A NEW CONCEPTION ATTEMPT
     Route: 064
  6. HYDROXYCHLOROQUINE [Suspect]
     Active Substance: HYDROXYCHLOROQUINE
     Indication: Product used for unknown indication
     Dosage: HYDROXYCHLOROQUINE PO BID 5 MG/KG/DAY; INTRODUCED 12 WEEKS PRIOR TO A NEW CONCEPTION ATTEMPT
     Route: 064
  7. ASPIRIN [Suspect]
     Active Substance: ASPIRIN
     Indication: Product used for unknown indication
     Dosage: LOW-DOSE; INTRODUCED 12 WEEKS PRIOR TO A NEW CONCEPTION ATTEMPT
     Route: 064

REACTIONS (5)
  - Low birth weight baby [Unknown]
  - Neutropenia neonatal [Recovered/Resolved]
  - Lymphopenia [Recovered/Resolved]
  - Premature baby [Unknown]
  - Foetal exposure during pregnancy [Unknown]
